FAERS Safety Report 19502791 (Version 1)
Quarter: 2021Q3

REPORT INFORMATION
  Report Type: Spontaneous
  Country: CN (occurrence: CN)
  Receive Date: 20210707
  Receipt Date: 20210707
  Transmission Date: 20211014
  Serious: Yes (Other)
  Sender: FDA-Public Use
  Company Number: CN-ELI_LILLY_AND_COMPANY-CN202106013451

PATIENT
  Sex: Female
  Weight: 80 kg

DRUGS (1)
  1. TRULICITY [Suspect]
     Active Substance: DULAGLUTIDE
     Indication: DIABETES MELLITUS
     Dosage: UNK, WEEKLY (1/W)
     Route: 058
     Dates: start: 202101

REACTIONS (9)
  - Drug ineffective [Unknown]
  - Body height decreased [Unknown]
  - Paralysis [Unknown]
  - Gait inability [Unknown]
  - Malaise [Unknown]
  - Eating disorder [Unknown]
  - Weight decreased [Unknown]
  - Drug resistance [Unknown]
  - Blood glucose increased [Unknown]
